FAERS Safety Report 12622248 (Version 10)
Quarter: 2017Q2

REPORT INFORMATION
  Report Type: Report from Study
  Country: FR (occurrence: FR)
  Receive Date: 20160804
  Receipt Date: 20170503
  Transmission Date: 20170830
  Serious: Yes (Other)
  Sender: FDA-Public Use
  Company Number: FR-PFIZER INC-2016272130

PATIENT
  Age: 62 Year
  Sex: Female
  Weight: 58 kg

DRUGS (10)
  1. FASLODEX [Concomitant]
     Active Substance: FULVESTRANT
     Indication: BREAST CANCER
     Dosage: 500 MG, MONTHLY
     Route: 030
     Dates: start: 20160511
  2. SEROPLEX [Concomitant]
     Active Substance: ESCITALOPRAM OXALATE
     Indication: DEPRESSION
     Dosage: 15 MG, DAILY
     Route: 048
     Dates: start: 2008
  3. PALBOCICLIB [Suspect]
     Active Substance: PALBOCICLIB
     Dosage: 100 MG, DAILY
     Route: 048
     Dates: start: 20160609, end: 20160828
  4. ZANIDIP [Concomitant]
     Active Substance: LERCANIDIPINE HYDROCHLORIDE
     Indication: HYPERTENSION
     Dosage: 10 MG, DAILY
     Route: 048
     Dates: start: 2006
  5. COTAREG [Concomitant]
     Active Substance: HYDROCHLOROTHIAZIDE\VALSARTAN
     Indication: HYPERTENSION
     Dosage: 1 TABLET, DAILY (160/25)
     Route: 048
     Dates: start: 2006
  6. XGEVA [Concomitant]
     Active Substance: DENOSUMAB
     Indication: BREAST CANCER METASTATIC
     Dosage: 1 DF (VIAL), MONTHLY
     Route: 058
     Dates: start: 20160407
  7. PALBOCICLIB [Suspect]
     Active Substance: PALBOCICLIB
     Indication: BREAST CANCER METASTATIC
     Dosage: 125 MG, DAILY
     Route: 048
     Dates: start: 20160511, end: 20160524
  8. PALBOCICLIB [Suspect]
     Active Substance: PALBOCICLIB
     Dosage: 100 MG, DAILY
     Route: 048
     Dates: start: 20160926
  9. CALTRATE /00944201/ [Concomitant]
     Active Substance: CALCIUM CARBONATE\CHOLECALCIFEROL
     Indication: BREAST CANCER METASTATIC
     Dosage: 1 DF (TABLET), DAILY
     Route: 048
     Dates: start: 20160407
  10. GRANOCYTE 34 [Suspect]
     Active Substance: LENOGRASTIM
     Indication: LEUKOPENIA
     Dosage: 34 UG, DAILY
     Route: 058
     Dates: start: 20160707, end: 20160720

REACTIONS (8)
  - Haemoglobin abnormal [Unknown]
  - Leukocytosis [Unknown]
  - Neutropenia [Recovered/Resolved]
  - Tonsillitis [Unknown]
  - Platelet count abnormal [Unknown]
  - Blood bilirubin increased [Recovered/Resolved]
  - Creatinine renal clearance decreased [Recovered/Resolved]
  - Bronchial disorder [Unknown]

NARRATIVE: CASE EVENT DATE: 20160511
